FAERS Safety Report 10204621 (Version 1)
Quarter: 2014Q2

REPORT INFORMATION
  Report Type: Report from Study
  Country: US (occurrence: US)
  Receive Date: 20140529
  Receipt Date: 20140529
  Transmission Date: 20141212
  Serious: Yes (Other)
  Sender: FDA-Public Use
  Company Number: US-MPIJNJ-2014MPI001491

PATIENT
  Age: 52 Year
  Sex: Male
  Weight: 82.1 kg

DRUGS (2)
  1. VELCADE [Suspect]
     Indication: PLASMA CELL MYELOMA
     Dosage: 2.75 MG, (DAY 1, 4, 8, 11 PER 21 DAY CYCLE)
     Route: 058
     Dates: start: 20140103
  2. DEXAMETHASONE [Suspect]
     Indication: PLASMA CELL MYELOMA
     Dosage: 4 MG, (DAY 1-4, 12-14 OF EACH 21 CYCLE)
     Route: 048
     Dates: start: 20140103

REACTIONS (1)
  - Hyperglycaemia [Recovered/Resolved]
